FAERS Safety Report 9225636 (Version 1)
Quarter: 2013Q2

REPORT INFORMATION
  Report Type: Spontaneous
  Country: US (occurrence: None)
  Receive Date: 20130410
  Receipt Date: 20130410
  Transmission Date: 20140414
  Serious: Yes (Life-Threatening, Other)
  Sender: FDA-Public Use
  Company Number: None

PATIENT
  Age: 19 Day
  Sex: Female
  Weight: 2.6 kg

DRUGS (2)
  1. MVI PEDIATRIC [Suspect]
     Dates: start: 20130324, end: 20130403
  2. MULTIPLE VITAMINS [Concomitant]

REACTIONS (3)
  - Rash [None]
  - Hypotension [None]
  - Hypothermia [None]
